FAERS Safety Report 5732970-3 (Version None)
Quarter: 2008Q2

REPORT INFORMATION
  Report Type: 
  Country: None (occurrence: None)
  Receive Date: 20080507
  Receipt Date: 20080507
  Transmission Date: 20081010
  Serious: No
  Sender: FDA-Public Use
  Company Number: None

PATIENT
  Sex: Male
  Weight: 82.1011 kg

DRUGS (1)
  1. DIGITEK .025 [Suspect]
     Indication: HEART RATE ABNORMAL
     Dosage: ONE DAILY
     Dates: start: 20060720, end: 20080506

REACTIONS (3)
  - EXTRASYSTOLES [None]
  - HEART RATE ABNORMAL [None]
  - HEART RATE DECREASED [None]
